FAERS Safety Report 12472421 (Version 1)
Quarter: 2016Q2

REPORT INFORMATION
  Report Type: Spontaneous
  Country: US (occurrence: US)
  Receive Date: 20160616
  Receipt Date: 20160616
  Transmission Date: 20160815
  Serious: No
  Sender: FDA-Public Use
  Company Number: US-ALLERGAN-1650808US

PATIENT
  Age: 30 Year
  Sex: Female

DRUGS (1)
  1. CRINONE [Suspect]
     Active Substance: PROGESTERONE
     Indication: FERTILITY INCREASED
     Dosage: 1 DF, QAM
     Route: 067

REACTIONS (1)
  - Rash [Unknown]
